FAERS Safety Report 9298120 (Version 2)
Quarter: 2013Q2

REPORT INFORMATION
  Report Type: Spontaneous
  Country: US (occurrence: None)
  Receive Date: 20121227
  Receipt Date: 20130507
  Transmission Date: 20140414
  Serious: No
  Sender: FDA-Public Use
  Company Number: PHEH2012US006354

PATIENT
  Age: 17 Year
  Sex: Female

DRUGS (9)
  1. AFINITOR (RAD) [Suspect]
     Indication: TUBEROUS SCLEROSIS
     Route: 048
     Dates: start: 20120309
  2. CARBATROL [Suspect]
  3. VITAMIN C [Suspect]
  4. LEXAPRO [Suspect]
  5. STRESS B (MINERALS NOS, VITAMINS NOS) [Suspect]
  6. METFORMIN [Suspect]
  7. RISPERDAL [Suspect]
  8. SEROQUEL [Suspect]
  9. NASONEX [Suspect]

REACTIONS (6)
  - Emotional disorder [None]
  - Abnormal behaviour [None]
  - Mood altered [None]
  - Acne [None]
  - Stomatitis [None]
  - Blood triglycerides increased [None]
